FAERS Safety Report 7513864-X (Version None)
Quarter: 2011Q2

REPORT INFORMATION
  Report Type: 
  Country: None (occurrence: None)
  Receive Date: 20110531
  Receipt Date: 20110518
  Transmission Date: 20111010
  Serious: Yes (Other)
  Sender: FDA-Public Use
  Company Number: PHHY2011US42565

PATIENT
  Sex: Male

DRUGS (8)
  1. PHENYTOIN [Suspect]
     Indication: CONVULSION
     Dosage: 100 MG, BID
  2. BUTRIN [Suspect]
     Indication: CONVULSION
     Dosage: 50 MG, UNK
  3. CLONAZEPAM [Suspect]
     Indication: CONVULSION
     Dosage: 1 MG, BID
  4. VALIUM [Suspect]
     Indication: CONVULSION
     Dosage: 10 MG IN THE MORNING AND 5 MG IN THE AFTERNOON
  5. CRESTOR [Concomitant]
     Indication: LIVER DISORDER
     Dosage: 5 MG, QD
  6. SYNTHROID [Concomitant]
     Indication: THYROID DISORDER
     Dosage: 150 MG, UNK
  7. TRILEPTAL [Suspect]
     Indication: CONVULSION
     Dosage: 450 MG, TID
  8. EFFEXOR [Suspect]
     Indication: DEPRESSION
     Dosage: 150 MG, QD

REACTIONS (10)
  - INSOMNIA [None]
  - SPEECH DISORDER [None]
  - AFFECTIVE DISORDER [None]
  - CONVULSION [None]
  - FEELING COLD [None]
  - MANIA [None]
  - CRYING [None]
  - FATIGUE [None]
  - DEPRESSION [None]
  - WEIGHT DECREASED [None]
